FAERS Safety Report 10048833 (Version 1)
Quarter: 2014Q1

REPORT INFORMATION
  Report Type: Spontaneous
  Country: US (occurrence: None)
  Receive Date: 20140327
  Receipt Date: 20140327
  Transmission Date: 20141002
  Serious: Yes (Other)
  Sender: FDA-Public Use
  Company Number: 2014-US-003020

PATIENT
  Age: 44 Year
  Sex: Female

DRUGS (9)
  1. XYREM [Suspect]
     Indication: NARCOLEPSY
     Route: 048
     Dates: start: 201112
  2. XYREM [Suspect]
     Indication: NARCOLEPSY
     Route: 048
     Dates: start: 201112
  3. XYREM [Suspect]
     Indication: WAXY FLEXIBILITY
     Route: 048
     Dates: start: 201112
  4. CYMBALTA [Concomitant]
  5. HYDROXYZINE (HYDROXYZINE HYDROCHLORIDE) [Concomitant]
  6. LODINE (ETODOLAC) [Concomitant]
  7. NEURONTIN (GABAPENTIN) [Concomitant]
  8. NUVIGIL (ARMODAFINIL) [Concomitant]
  9. TERBINAFINE HCL (TERBINAFINE HYDROCHLORIDE) [Concomitant]

REACTIONS (11)
  - Sleep apnoea syndrome [None]
  - Rhinorrhoea [None]
  - Sneezing [None]
  - Nasal congestion [None]
  - Snoring [None]
  - Nocturia [None]
  - Dry mouth [None]
  - Headache [None]
  - Sleep paralysis [None]
  - Nightmare [None]
  - Sleep-related eating disorder [None]
